FAERS Safety Report 7280325-5 (Version None)
Quarter: 2011Q1

REPORT INFORMATION
  Report Type: 
  Country: None (occurrence: None)
  Receive Date: 20110208
  Receipt Date: 20110207
  Transmission Date: 20110831
  Serious: Yes (Death, Hospitalization)
  Sender: FDA-Public Use
  Company Number: DE-PFIZER INC-2006087973

PATIENT
  Age: 53 Year
  Sex: Male

DRUGS (8)
  1. MORPHINE [Concomitant]
     Dates: start: 20051201
  2. LERCANIDIPINE [Concomitant]
     Dates: start: 20060517
  3. SUNITINIB MALATE [Suspect]
     Indication: METASTATIC RENAL CELL CARCINOMA
     Dosage: 50 MG, 1X/DAY
     Route: 048
     Dates: start: 20060216, end: 20060712
  4. DIMETICONE [Concomitant]
     Dates: start: 20060310
  5. LEVOTHYROXINE SODIUM [Concomitant]
     Route: 048
     Dates: start: 20060614
  6. RABEPRAZOLE SODIUM [Concomitant]
     Dates: start: 20060218
  7. FUROSEMIDE [Concomitant]
     Route: 048
     Dates: start: 20060502
  8. HEPARIN-FRACTION, SODIUM SALT [Concomitant]
     Dates: start: 20060220

REACTIONS (1)
  - PYREXIA [None]
